FAERS Safety Report 6862401-1 (Version None)
Quarter: 2010Q3

REPORT INFORMATION
  Report Type: 
  Country: None (occurrence: None)
  Receive Date: 20100719
  Receipt Date: 20100705
  Transmission Date: 20110219
  Serious: Yes (Hospitalization)
  Sender: FDA-Public Use
  Company Number: 7004333

PATIENT
  Age: 22 Year
  Sex: Female

DRUGS (2)
  1. SAIZEN [Suspect]
     Indication: GROWTH HORMONE DEFICIENCY
     Dosage: 0.2 MG; 0.4 MG
     Dates: start: 20100412, end: 20100101
  2. SAIZEN [Suspect]
     Indication: GROWTH HORMONE DEFICIENCY
     Dosage: 0.2 MG; 0.4 MG
     Dates: start: 20100101

REACTIONS (9)
  - BLOOD SODIUM DECREASED [None]
  - CHEST PAIN [None]
  - DIZZINESS [None]
  - FALL [None]
  - HEADACHE [None]
  - HYPOTENSION [None]
  - SPINAL FRACTURE [None]
  - VISION BLURRED [None]
  - VOMITING [None]
